FAERS Safety Report 9829756 (Version 1)
Quarter: 2014Q1

REPORT INFORMATION
  Report Type: Spontaneous
  Country: JP (occurrence: JP)
  Receive Date: 20140120
  Receipt Date: 20140120
  Transmission Date: 20141002
  Serious: Yes (Other)
  Sender: FDA-Public Use
  Company Number: JP-ROCHE-1334023

PATIENT
  Age: 65 Year
  Sex: Female
  Weight: 40 kg

DRUGS (10)
  1. ACTEMRA [Suspect]
     Indication: RHEUMATOID ARTHRITIS
     Route: 041
     Dates: start: 20110209, end: 20110601
  2. ACTEMRA [Suspect]
     Indication: RHEUMATOID ARTHRITIS
     Dosage: DOSAGE IS UNCERTAIN.
     Route: 041
     Dates: start: 2011
  3. PREDNISOLONE [Concomitant]
     Indication: RHEUMATOID ARTHRITIS
     Route: 048
  4. CALFINA [Concomitant]
     Indication: PROPHYLAXIS
     Route: 048
  5. MAGNESIUM OXIDE [Concomitant]
     Indication: CONSTIPATION
     Route: 048
  6. KLARICID [Concomitant]
     Indication: BRONCHITIS CHRONIC
     Route: 048
  7. METHOTREXATE [Concomitant]
     Indication: RHEUMATOID ARTHRITIS
     Route: 048
     Dates: end: 20110601
  8. FOLIAMIN [Concomitant]
     Indication: PROPHYLAXIS
     Route: 048
     Dates: end: 20110601
  9. REBAMIPIDE [Concomitant]
     Indication: PROPHYLAXIS
     Route: 048
  10. SAWATENE [Concomitant]
     Indication: BRONCHITIS CHRONIC
     Route: 048

REACTIONS (1)
  - Organising pneumonia [Recovered/Resolved]
